FAERS Safety Report 9900720 (Version 2)
Quarter: 2014Q1

REPORT INFORMATION
  Report Type: Report from Study
  Country: CH (occurrence: DE)
  Receive Date: 20140217
  Receipt Date: 20140317
  Transmission Date: 20141002
  Serious: Yes (Disabling, Other)
  Sender: FDA-Public Use
  Company Number: CH-AMGEN-CHECT2014011120

PATIENT
  Age: 58 Year
  Sex: Male
  Weight: 66 kg

DRUGS (2)
  1. ETANERCEPT [Suspect]
     Indication: PSORIATIC ARTHROPATHY
     Dosage: UNK, QWK
     Route: 065
  2. ETANERCEPT [Suspect]
     Indication: PSORIASIS
     Dosage: UNK
     Route: 065

REACTIONS (3)
  - Joint stiffness [Recovered/Resolved]
  - Mobility decreased [Recovered/Resolved]
  - Drug ineffective [Unknown]
